FAERS Safety Report 4271673-1 (Version None)
Quarter: 2004Q1

REPORT INFORMATION
  Report Type: 
  Country: None (occurrence: None)
  Receive Date: 20040113
  Receipt Date: 20040102
  Transmission Date: 20041129
  Serious: Yes (Other)
  Sender: FDA-Public Use
  Company Number: 2004000560

PATIENT
  Age: 50 Year
  Sex: Female

DRUGS (1)
  1. PIROXICAM [Suspect]
     Indication: BACK PAIN
     Dosage: 2 ML (OD), INTRAMUSCULAR
     Route: 030

REACTIONS (6)
  - ANAPHYLACTIC SHOCK [None]
  - DIZZINESS [None]
  - HYPOTENSION [None]
  - NAUSEA [None]
  - PAIN [None]
  - PRURITUS [None]
